FAERS Safety Report 14638237 (Version 2)
Quarter: 2018Q1

REPORT INFORMATION
  Report Type: Spontaneous
  Country: IR (occurrence: IR)
  Receive Date: 20180314
  Receipt Date: 20180322
  Transmission Date: 20180509
  Serious: Yes (Death, Hospitalization, Other)
  Sender: FDA-Public Use
  Company Number: IR-IMPAX LABORATORIES, INC-2018-IPXL-00778

PATIENT
  Age: 46 Year
  Sex: Male

DRUGS (2)
  1. GLYBURIDE. [Suspect]
     Active Substance: GLYBURIDE
     Indication: INTENTIONAL PRODUCT MISUSE
     Dosage: UNK
     Route: 065
  2. INSULIN [Suspect]
     Active Substance: INSULIN NOS
     Indication: INTENTIONAL PRODUCT MISUSE
     Dosage: UNK
     Route: 065

REACTIONS (4)
  - Hypoglycaemia [Unknown]
  - Loss of consciousness [Fatal]
  - Intentional product misuse [Unknown]
  - Insulin C-peptide increased [Unknown]
